FAERS Safety Report 6173730-1 (Version None)
Quarter: 2009Q2

REPORT INFORMATION
  Report Type: 
  Country: None (occurrence: None)
  Receive Date: 20090430
  Receipt Date: 20090421
  Transmission Date: 20091009
  Serious: Yes (Other)
  Sender: FDA-Public Use
  Company Number: PHHY2009JP09961

PATIENT
  Sex: Female
  Weight: 58 kg

DRUGS (16)
  1. ICL670A ICL+DISTAB [Suspect]
     Indication: ACUTE MYELOID LEUKAEMIA
     Dosage: 500 MG, QD
     Route: 048
     Dates: start: 20080827, end: 20080901
  2. NEORAL [Suspect]
     Indication: ACUTE MYELOID LEUKAEMIA
     Dosage: 110 MG DAILY
     Route: 048
     Dates: start: 20080826, end: 20081001
  3. NEORAL [Suspect]
     Dosage: 65 MG DAILY
     Route: 048
     Dates: start: 20081002, end: 20081007
  4. NEORAL [Suspect]
     Dosage: 130 MG DAILY
     Route: 048
     Dates: start: 20081008, end: 20090130
  5. NEORAL [Suspect]
     Dosage: 110 MG DAILY
     Route: 048
     Dates: start: 20090214
  6. MUCOSTA [Concomitant]
     Indication: PROPHYLAXIS
     Dosage: 300 MG, UNK
     Route: 048
     Dates: start: 20080827
  7. BONAMINE [Concomitant]
     Indication: PROPHYLAXIS
     Dosage: 35 MG, UNK
     Route: 048
     Dates: start: 20080104
  8. STARSIS [Concomitant]
     Dosage: 180 MG, UNK
     Route: 048
     Dates: start: 20080731
  9. MYCOSYST [Concomitant]
     Dosage: 200 MG, UNK
     Route: 048
     Dates: start: 20080101
  10. MIYA-BM [Concomitant]
     Dosage: 3 G, UNK
     Route: 048
     Dates: start: 20080411
  11. ZOVIRAX [Concomitant]
     Dosage: 600 MG, UNK
     Route: 048
     Dates: start: 20080411
  12. PREDONINE [Concomitant]
     Dosage: 14 MG, UNK
     Dates: start: 20080823
  13. RED BLOOD CELLS [Concomitant]
     Dosage: 2 U, QW
     Dates: start: 20080909, end: 20081007
  14. RED BLOOD CELLS [Concomitant]
     Dosage: 2 U, QW3
     Dates: start: 20081007, end: 20090116
  15. RED BLOOD CELLS [Concomitant]
     Dosage: 2 U, QW
     Dates: start: 20090116, end: 20090130
  16. RED BLOOD CELLS [Concomitant]
     Dosage: 2 U, QW2
     Dates: start: 20090130, end: 20090130

REACTIONS (3)
  - PYREXIA [None]
  - RENAL IMPAIRMENT [None]
  - RETINAL HAEMORRHAGE [None]
